FAERS Safety Report 5824467-7 (Version None)
Quarter: 2008Q3

REPORT INFORMATION
  Report Type: 
  Country: None (occurrence: None)
  Receive Date: 20080728
  Receipt Date: 20080724
  Transmission Date: 20090109
  Serious: Yes (Hospitalization)
  Sender: FDA-Public Use
  Company Number: B0530477A

PATIENT
  Age: 44 Year
  Sex: Male

DRUGS (4)
  1. PAXIL [Suspect]
     Indication: DEPRESSION
     Dosage: 10MG PER DAY
     Route: 048
     Dates: start: 20070901
  2. ALPRAZOLAM [Concomitant]
     Dosage: 1.2MG THREE TIMES PER DAY
     Route: 048
     Dates: start: 20080601
  3. MEDICON [Concomitant]
     Route: 048
     Dates: end: 20080608
  4. SOLANTAL [Concomitant]
     Route: 048
     Dates: end: 20080608

REACTIONS (2)
  - ALTERED STATE OF CONSCIOUSNESS [None]
  - SUICIDE ATTEMPT [None]
